FAERS Safety Report 7672863-8 (Version None)
Quarter: 2011Q3

REPORT INFORMATION
  Report Type: 
  Country: None (occurrence: None)
  Receive Date: 20110809
  Receipt Date: 20110711
  Transmission Date: 20111222
  Serious: Yes (Hospitalization)
  Sender: FDA-Public Use
  Company Number: PHHY2011BR63013

PATIENT
  Age: 45 Year
  Sex: Female

DRUGS (1)
  1. VOLTAREN [Suspect]
     Indication: RENAL PAIN
     Dosage: 2 DF, BID (2 SUPPOSITORIES EACH 12 HOURS)
     Route: 054

REACTIONS (7)
  - VOMITING [None]
  - INTESTINAL STRANGULATION [None]
  - RENAL PAIN [None]
  - MUSCULAR WEAKNESS [None]
  - BACK PAIN [None]
  - CRYSTAL URINE [None]
  - COLITIS [None]
